FAERS Safety Report 5446648-7 (Version None)
Quarter: 2007Q3

REPORT INFORMATION
  Report Type: 
  Country: None (occurrence: None)
  Receive Date: 20070907
  Receipt Date: 20070810
  Transmission Date: 20080115
  Serious: Yes (Other)
  Sender: FDA-Public Use
  Company Number: JP-PFIZER INC-2007067942

PATIENT
  Age: 36 Year
  Sex: Female

DRUGS (3)
  1. GABAPEN [Suspect]
     Dosage: DAILY DOSE:1200MG
     Dates: start: 20070713, end: 20070810
  2. ZONISAMIDE [Concomitant]
  3. LEUCON [Concomitant]

REACTIONS (2)
  - PLATELET COUNT DECREASED [None]
  - WHITE BLOOD CELL COUNT DECREASED [None]
